FAERS Safety Report 25529152 (Version 7)
Quarter: 2025Q4

REPORT INFORMATION
  Report Type: Spontaneous
  Country: AR (occurrence: AR)
  Receive Date: 20250708
  Receipt Date: 20251222
  Transmission Date: 20260117
  Serious: Yes (Other)
  Sender: MYLAN
  Company Number: AR-MYLANLABS-2024M1020981

PATIENT
  Age: 35 Year
  Sex: Female

DRUGS (1)
  1. CLOZAPINE [Suspect]
     Active Substance: CLOZAPINE
     Indication: Product used for unknown indication
     Dosage: UNK

REACTIONS (13)
  - Neutropenia [Recovered/Resolved]
  - Infectious mononucleosis [Not Recovered/Not Resolved]
  - Haematocrit decreased [Recovered/Resolved]
  - Red blood cell count decreased [Not Recovered/Not Resolved]
  - Haemoglobin decreased [Not Recovered/Not Resolved]
  - Mean cell haemoglobin concentration decreased [Recovered/Resolved]
  - Lymphocyte count increased [Recovering/Resolving]
  - Mean cell volume decreased [Unknown]
  - Mean cell haemoglobin increased [Recovered/Resolved]
  - Mean cell volume increased [Recovered/Resolved]
  - Eosinophil count decreased [Recovered/Resolved]
  - Monocyte count increased [Recovered/Resolved]
  - Platelet count decreased [Recovered/Resolved]

NARRATIVE: CASE EVENT DATE: 20240304
